FAERS Safety Report 11857425 (Version 1)
Quarter: 2015Q4

REPORT INFORMATION
  Report Type: Report from Study
  Country: AU (occurrence: AU)
  Receive Date: 20151221
  Receipt Date: 20151221
  Transmission Date: 20160305
  Serious: Yes (Hospitalization, Other)
  Sender: FDA-Public Use
  Company Number: PHHY2015AU163232

PATIENT
  Sex: Male
  Weight: 100 kg

DRUGS (2)
  1. SANDOSTATIN LAR DEPOT [Suspect]
     Active Substance: OCTREOTIDE ACETATE
     Dosage: 60 MG, QMO (4 WEEKLY)
     Route: 030
  2. SANDOSTATIN LAR DEPOT [Suspect]
     Active Substance: OCTREOTIDE ACETATE
     Indication: CARCINOID SYNDROME
     Dosage: 30 MG
     Route: 030
     Dates: start: 20150626

REACTIONS (5)
  - Peritonitis [Recovering/Resolving]
  - Intestinal obstruction [Recovering/Resolving]
  - Malignant neoplasm progression [Recovering/Resolving]
  - Neoplasm [Recovering/Resolving]
  - Hepatic lesion [Unknown]
